FAERS Safety Report 12852984 (Version 1)
Quarter: 2016Q4

REPORT INFORMATION
  Report Type: Spontaneous
  Country: US (occurrence: US)
  Receive Date: 20161017
  Receipt Date: 20161017
  Transmission Date: 20170207
  Serious: No
  Sender: FDA-Public Use
  Company Number: US-JAZZ-2016-US-014040

PATIENT
  Sex: Female

DRUGS (17)
  1. DULERA [Concomitant]
     Active Substance: FORMOTEROL FUMARATE DIHYDRATE\MOMETASONE FUROATE
  2. MIRENA [Concomitant]
     Active Substance: LEVONORGESTREL
  3. ADDERALL [Concomitant]
     Active Substance: AMPHETAMINE ASPARTATE\AMPHETAMINE SULFATE\DEXTROAMPHETAMINE SACCHARATE\DEXTROAMPHETAMINE SULFATE
  4. CLARITIN [Concomitant]
     Active Substance: LORATADINE
  5. PATADAY [Concomitant]
     Active Substance: OLOPATADINE HYDROCHLORIDE
  6. SPIRONOLACTONE. [Concomitant]
     Active Substance: SPIRONOLACTONE
  7. XYREM [Suspect]
     Active Substance: SODIUM OXYBATE
     Dosage: 4 G, BID
     Route: 048
     Dates: start: 200802
  8. NUVIGIL [Suspect]
     Active Substance: ARMODAFINIL
     Indication: PRODUCT USED FOR UNKNOWN INDICATION
     Dosage: UNK
  9. PROAIR HFA [Concomitant]
     Active Substance: ALBUTEROL SULFATE
  10. BENADRYL ALLERGY [Concomitant]
     Active Substance: DIPHENHYDRAMINE HYDROCHLORIDE
  11. ALBUTEROL. [Concomitant]
     Active Substance: ALBUTEROL
  12. FLONASE [Concomitant]
     Active Substance: FLUTICASONE PROPIONATE
  13. PROVIGIL [Concomitant]
     Active Substance: MODAFINIL
  14. ZYRTEC [Concomitant]
     Active Substance: CETIRIZINE HYDROCHLORIDE
  15. XYREM [Suspect]
     Active Substance: SODIUM OXYBATE
     Indication: NARCOLEPSY
     Dosage: 3 G, BID
     Route: 048
     Dates: start: 200801, end: 200802
  16. MULTIVITAMINS [Concomitant]
     Active Substance: VITAMINS
  17. SUDAFED PE CONGESTION [Concomitant]
     Active Substance: PHENYLEPHRINE HYDROCHLORIDE

REACTIONS (8)
  - Malaise [Unknown]
  - Condition aggravated [Not Recovered/Not Resolved]
  - Food allergy [Unknown]
  - Poor quality sleep [Not Recovered/Not Resolved]
  - Hypersensitivity [Unknown]
  - Bronchitis [Unknown]
  - Asthma [Not Recovered/Not Resolved]
  - Hypersensitivity [Not Recovered/Not Resolved]

NARRATIVE: CASE EVENT DATE: 2012
